FAERS Safety Report 25115133 (Version 1)
Quarter: 2025Q1

REPORT INFORMATION
  Report Type: Spontaneous
  Country: FR (occurrence: FR)
  Receive Date: 20250324
  Receipt Date: 20250324
  Transmission Date: 20250408
  Serious: Yes (Other)
  Sender: GE HEALTHCARE
  Company Number: None

PATIENT
  Age: 33 Year
  Sex: Female

DRUGS (4)
  1. VISIPAQUE [Interacting]
     Active Substance: IODIXANOL
     Indication: Transcatheter arterial chemoembolisation
     Route: 042
     Dates: start: 20220825, end: 20220825
  2. VISIPAQUE [Interacting]
     Active Substance: IODIXANOL
     Route: 042
     Dates: start: 20230313, end: 20230313
  3. LIPIODOL ULTRA-FLUIDE [Interacting]
     Active Substance: ETHIODIZED OIL
     Indication: Transcatheter arterial chemoembolisation
     Route: 042
     Dates: start: 20220825, end: 20220825
  4. LIPIODOL ULTRA-FLUIDE [Interacting]
     Active Substance: ETHIODIZED OIL
     Route: 042
     Dates: start: 20230313, end: 20230313

REACTIONS (3)
  - Drug interaction [Recovered/Resolved]
  - Iodine overload [Recovered/Resolved]
  - Hyperthyroidism [Recovered/Resolved]

NARRATIVE: CASE EVENT DATE: 20240927
